FAERS Safety Report 26138162 (Version 1)
Quarter: 2025Q4

REPORT INFORMATION
  Report Type: Spontaneous
  Country: US (occurrence: US)
  Receive Date: 20251210
  Receipt Date: 20251210
  Transmission Date: 20260118
  Serious: Yes (Disabling)
  Sender: DR REDDYS
  Company Number: US-MLMSERVICE-20251121-PI722100-00336-1

PATIENT
  Age: 36 Year
  Sex: Male

DRUGS (1)
  1. ZOLEDRONIC ACID [Suspect]
     Active Substance: ZOLEDRONIC ACID
     Indication: Product used for unknown indication
     Route: 065

REACTIONS (3)
  - Condition aggravated [Unknown]
  - Hypophosphataemic osteomalacia [Unknown]
  - Fracture [Unknown]
